FAERS Safety Report 5900003-1 (Version None)
Quarter: 2008Q3

REPORT INFORMATION
  Report Type: 
  Country: None (occurrence: None)
  Receive Date: 20080925
  Receipt Date: 20080925
  Transmission Date: 20090109
  Serious: Yes (Hospitalization)
  Sender: FDA-Public Use
  Company Number: None

PATIENT
  Age: 60 Year
  Sex: Male
  Weight: 92.9 kg

DRUGS (1)
  1. IOHEXOL [Suspect]
     Indication: DIAGNOSTIC PROCEDURE
     Dosage: UD ONCE IV
     Route: 042
     Dates: start: 20070620, end: 20070620

REACTIONS (3)
  - PRURITUS [None]
  - RASH [None]
  - URTICARIA [None]
